FAERS Safety Report 8316588-4 (Version None)
Quarter: 2012Q2

REPORT INFORMATION
  Report Type: 
  Country: None (occurrence: None)
  Receive Date: 20120427
  Receipt Date: 20120424
  Transmission Date: 20120825
  Serious: No
  Sender: FDA-Public Use
  Company Number: PHEH2012US007400

PATIENT
  Sex: Male
  Weight: 101.13 kg

DRUGS (3)
  1. DOCUSATE [Concomitant]
  2. TASIGNA [Suspect]
     Indication: CHRONIC MYELOID LEUKAEMIA
     Dosage: 400 MG, QD
     Route: 048
     Dates: start: 20120331
  3. LEXAPRO [Concomitant]

REACTIONS (1)
  - HEADACHE [None]
